FAERS Safety Report 17251119 (Version 1)
Quarter: 2019Q4

REPORT INFORMATION
  Report Type: Spontaneous
  Country: US (occurrence: US)
  Receive Date: 20191216
  Receipt Date: 20191216
  Transmission Date: 20200122
  Serious: Yes (Hospitalization)
  Sender: FDA-Public Use
  Company Number: None

PATIENT
  Age: 16 Year
  Sex: Male

DRUGS (1)
  1. FORTEO [Suspect]
     Active Substance: TERIPARATIDE
     Indication: HYPOCALCAEMIA
     Route: 058
     Dates: start: 20191104, end: 20191105

REACTIONS (3)
  - Product dispensing error [None]
  - Product dose omission [None]
  - Hypoglycaemia [None]

NARRATIVE: CASE EVENT DATE: 20191104
